FAERS Safety Report 8030956-X (Version None)
Quarter: 2012Q1

REPORT INFORMATION
  Report Type: 
  Country: None (occurrence: None)
  Receive Date: 20120109
  Receipt Date: 20111229
  Transmission Date: 20120608
  Serious: Yes (Other)
  Sender: FDA-Public Use
  Company Number: US-CELGENEUS-163-21880-11071466

PATIENT
  Sex: Female

DRUGS (7)
  1. REVLIMID [Suspect]
     Route: 048
     Dates: start: 20110701
  2. ASPIRIN [Concomitant]
     Dosage: 325 MILLIGRAM
     Route: 048
     Dates: start: 20101207
  3. IBUPROFEN [Concomitant]
     Dosage: 400 MILLIGRAM
     Route: 065
     Dates: start: 20110505, end: 20110701
  4. LEXAPRO [Concomitant]
     Dosage: 10 MILLIGRAM
     Route: 048
     Dates: start: 20101101
  5. ENPRESSE [Concomitant]
     Route: 048
  6. ACYCLOVIR [Concomitant]
     Indication: PROPHYLAXIS
     Dosage: 400 MILLIGRAM
     Route: 048
     Dates: start: 20100802
  7. REVLIMID [Suspect]
     Indication: MULTIPLE MYELOMA
     Dosage: 10 MILLIGRAM
     Route: 048
     Dates: start: 20101207, end: 20110701

REACTIONS (2)
  - COLITIS ULCERATIVE [None]
  - ABDOMINAL PAIN UPPER [None]
